FAERS Safety Report 14765774 (Version 2)
Quarter: 2018Q2

REPORT INFORMATION
  Report Type: Spontaneous
  Country: US (occurrence: US)
  Receive Date: 20180416
  Receipt Date: 20180420
  Transmission Date: 20180711
  Serious: No
  Sender: FDA-Public Use
  Company Number: US-JNJFOC-20180402666

PATIENT
  Age: 55 Year
  Sex: Female
  Weight: 80.74 kg

DRUGS (2)
  1. ZYRTEC-D [Suspect]
     Active Substance: CETIRIZINE HYDROCHLORIDE\PSEUDOEPHEDRINE HYDROCHLORIDE
     Indication: HYPERSENSITIVITY
     Dosage: ONE TABLET IN THE EVENING OF 30-MAR-2018 AND ONE TABLET IN THE MORNING OF 31-MAR-2018
     Route: 065
     Dates: start: 20180330, end: 20180331
  2. ZYRTEC-D [Suspect]
     Active Substance: CETIRIZINE HYDROCHLORIDE\PSEUDOEPHEDRINE HYDROCHLORIDE
     Indication: NASAL CONGESTION
     Dosage: ONE TABLET IN THE EVENING OF 30-MAR-2018 AND ONE TABLET IN THE MORNING OF 31-MAR-2018
     Route: 065
     Dates: start: 20180330, end: 20180331

REACTIONS (1)
  - Drug ineffective [Unknown]
